FAERS Safety Report 9324745 (Version 1)
Quarter: 2013Q2

REPORT INFORMATION
  Report Type: Spontaneous
  Country: NL (occurrence: NL)
  Receive Date: 20130603
  Receipt Date: 20130603
  Transmission Date: 20140414
  Serious: Yes (Life-Threatening, Hospitalization)
  Sender: FDA-Public Use
  Company Number: NL-TEVA-408129ISR

PATIENT
  Age: 20 Year
  Sex: Female
  Weight: 65 kg

DRUGS (3)
  1. ISONIAZIDE TABLET 200MG [Suspect]
     Indication: LATENT TUBERCULOSIS
     Dosage: 300 MILLIGRAM DAILY; ONCE DAILY 1.5 PIECES
     Route: 048
     Dates: start: 20130131
  2. IMPLANON IMPLANTAAT IN APPLICATOR 68MG [Interacting]
     Indication: CONTRACEPTION
     Dosage: EXTRA INFORMATION: ONCE ONLY
     Route: 058
     Dates: start: 201206
  3. DANAZOL CAPSULE 200MG [Interacting]
     Indication: C1 ESTERASE INHIBITOR TEST
     Dosage: 200 MILLIGRAM DAILY;
     Route: 048
     Dates: start: 201209

REACTIONS (2)
  - Angioedema [Recovered/Resolved]
  - Drug interaction [Recovered/Resolved]
